FAERS Safety Report 8836580 (Version 1)
Quarter: 2012Q4

REPORT INFORMATION
  Report Type: Spontaneous
  Country: US (occurrence: None)
  Receive Date: 20121009
  Receipt Date: 20121009
  Transmission Date: 20130627
  Serious: Yes (Other)
  Sender: FDA-Public Use
  Company Number: DKLU1084835

PATIENT
  Age: 43 Year
  Sex: Female

DRUGS (1)
  1. ONFI [Suspect]

REACTIONS (3)
  - Aggression [None]
  - Physical assault [None]
  - Hallucination, auditory [None]
